FAERS Safety Report 9319800 (Version 1)
Quarter: 2013Q2

REPORT INFORMATION
  Report Type: Spontaneous
  Country: US (occurrence: US)
  Receive Date: 20130530
  Receipt Date: 20130530
  Transmission Date: 20140414
  Serious: Yes (Hospitalization)
  Sender: FDA-Public Use
  Company Number: US-BAYER-2013-066550

PATIENT
  Age: 36 Year
  Sex: Female

DRUGS (5)
  1. YASMIN [Suspect]
  2. SYNTHROID [Concomitant]
  3. ANTIVERT [Concomitant]
  4. MECLIZINE [Concomitant]
     Dosage: 25 MG, UNK
  5. ACETAZOLAMIDE [Concomitant]
     Dosage: 250 MG, UNK

REACTIONS (2)
  - Cerebral infarction [None]
  - Cerebrovascular accident [None]
